FAERS Safety Report 13404842 (Version 1)
Quarter: 2017Q2

REPORT INFORMATION
  Report Type: Spontaneous
  Country: US (occurrence: US)
  Receive Date: 20170405
  Receipt Date: 20170405
  Transmission Date: 20170830
  Serious: Yes (Disabling)
  Sender: FDA-Public Use
  Company Number: None

PATIENT
  Age: 70 Year
  Sex: Female
  Weight: 70.37 kg

DRUGS (27)
  1. PALIPERIDONE. [Suspect]
     Active Substance: PALIPERIDONE
     Indication: RESTLESSNESS
     Dosage: 1 CAP. PER DAY MOUTH
     Route: 048
     Dates: start: 20161021, end: 20170217
  2. INVEGA SUSTENNA [Suspect]
     Active Substance: PALIPERIDONE PALMITATE
     Dosage: 234 MG + 156 MG, 4-8 DAY INJ-1 MONTH INJ
  3. LOSARTAN. [Concomitant]
     Active Substance: LOSARTAN
  4. LOW DOSE ASPIRIN [Concomitant]
     Active Substance: ASPIRIN
  5. VITAMIN B [Concomitant]
     Active Substance: VITAMIN B
  6. CARTICEL [Concomitant]
     Active Substance: AUTOLOGOUS CULTURED CHONDROCYTES
  7. MILK THISTLE [Concomitant]
     Active Substance: MILK THISTLE
  8. PALIPERIDONE. [Suspect]
     Active Substance: PALIPERIDONE
     Indication: DELUSION
     Dosage: 1 CAP. PER DAY MOUTH
     Route: 048
     Dates: start: 20161021, end: 20170217
  9. MASK FOR SLEEP APNEA [Concomitant]
  10. ASTRAGULUS [Concomitant]
  11. CLONAZEPAM. [Concomitant]
     Active Substance: CLONAZEPAM
  12. BENODRYL [Concomitant]
  13. VITAMIN A [Concomitant]
     Active Substance: VITAMIN A
  14. CORVEDILOL [Concomitant]
  15. VAYACOG [Concomitant]
  16. TUMERIC [Concomitant]
     Active Substance: HERBALS\TURMERIC
  17. HYDROXYZINE HCL [Concomitant]
     Active Substance: HYDROXYZINE HYDROCHLORIDE
  18. DONEPEZIL. [Concomitant]
     Active Substance: DONEPEZIL
  19. MAGNESIUM [Concomitant]
     Active Substance: MAGNESIUM
  20. LEXAPRO [Concomitant]
     Active Substance: ESCITALOPRAM OXALATE
  21. VITAMIN C [Concomitant]
     Active Substance: ASCORBIC ACID
  22. CALCIUM [Concomitant]
     Active Substance: CALCIUM
  23. CINAMON [Concomitant]
  24. METHENAMINE HIPPURATE. [Concomitant]
     Active Substance: METHENAMINE HIPPURATE
  25. VITAMIN D [Concomitant]
     Active Substance: CHOLECALCIFEROL
  26. ZINC. [Concomitant]
     Active Substance: ZINC
  27. CRARACTIN [Concomitant]

REACTIONS (10)
  - Restlessness [None]
  - Withdrawal syndrome [None]
  - Overdose [None]
  - Incontinence [None]
  - Depression [None]
  - Somnolence [None]
  - Anxiety [None]
  - Agitation [None]
  - Decreased appetite [None]
  - Dizziness [None]

NARRATIVE: CASE EVENT DATE: 20161021
